FAERS Safety Report 10173745 (Version 1)
Quarter: 2014Q2

REPORT INFORMATION
  Report Type: Spontaneous
  Country: FR (occurrence: FR)
  Receive Date: 20140515
  Receipt Date: 20140515
  Transmission Date: 20141212
  Serious: Yes (Hospitalization)
  Sender: FDA-Public Use
  Company Number: FR-BAYER-2014-067364

PATIENT
  Age: 88 Year
  Sex: Female

DRUGS (3)
  1. CIFLOX [Suspect]
     Indication: PYELONEPHRITIS
     Dosage: UNK
     Route: 048
     Dates: start: 20140408
  2. PREVISCAN [Interacting]
     Indication: ATRIAL FIBRILLATION
     Dosage: 15 MG, UNK
     Route: 048
     Dates: start: 201404
  3. PREVISCAN [Interacting]
     Indication: ARRHYTHMIA

REACTIONS (2)
  - Haematoma [Recovering/Resolving]
  - International normalised ratio increased [Recovered/Resolved]
